FAERS Safety Report 8320554-2 (Version None)
Quarter: 2012Q2

REPORT INFORMATION
  Report Type: 
  Country: None (occurrence: None)
  Receive Date: 20120430
  Receipt Date: 20120425
  Transmission Date: 20120825
  Serious: Yes (Disabling, Other)
  Sender: FDA-Public Use
  Company Number: CA-PFIZER INC-2012079096

PATIENT
  Age: 65 Year
  Sex: Female
  Weight: 70.295 kg

DRUGS (5)
  1. LIPITOR [Suspect]
     Indication: BLOOD CHOLESTEROL INCREASED
     Dosage: 10 MG, 1X/DAY
     Dates: start: 20100810, end: 20120101
  2. ATORVASTATIN [Suspect]
     Indication: BLOOD CHOLESTEROL
     Dosage: 10 MG, 1X/DAY
     Dates: start: 20100801, end: 20120101
  3. ESCITALOPRAM [Concomitant]
     Indication: DEPRESSION
     Dosage: 10 MG, 1X/DAY
     Dates: start: 20110901
  4. SYNTHROID [Concomitant]
     Indication: THYROID DISORDER
     Dosage: 0.05 UNK, 1X/DAY
     Dates: start: 20020101
  5. METFORMIN [Concomitant]
     Indication: TYPE 2 DIABETES MELLITUS
     Dosage: 500 MG, 1X/DAY
     Dates: start: 20100101

REACTIONS (11)
  - MUSCULAR WEAKNESS [None]
  - HEAD INJURY [None]
  - BLOOD LACTATE DEHYDROGENASE INCREASED [None]
  - BLOOD CREATINE PHOSPHOKINASE INCREASED [None]
  - FATIGUE [None]
  - ASPARTATE AMINOTRANSFERASE INCREASED [None]
  - DYSPHAGIA [None]
  - COORDINATION ABNORMAL [None]
  - FALL [None]
  - MYALGIA [None]
  - ALANINE AMINOTRANSFERASE INCREASED [None]
